FAERS Safety Report 25116884 (Version 1)
Quarter: 2025Q1

REPORT INFORMATION
  Report Type: Spontaneous
  Country: US (occurrence: US)
  Receive Date: 20250325
  Receipt Date: 20250325
  Transmission Date: 20250409
  Serious: No
  Sender: NOVARTIS
  Company Number: US-002147023-NVSC2025US048544

PATIENT
  Sex: Male

DRUGS (1)
  1. TRILEPTAL [Suspect]
     Active Substance: OXCARBAZEPINE
     Indication: Product used for unknown indication
     Dosage: 300 MG, BID
     Route: 065

REACTIONS (6)
  - Mental disorder [Unknown]
  - Confusional state [Unknown]
  - Mood altered [Unknown]
  - Reading disorder [Unknown]
  - Disturbance in attention [Unknown]
  - Adverse drug reaction [Unknown]
